FAERS Safety Report 8137340-9 (Version None)
Quarter: 2012Q1

REPORT INFORMATION
  Report Type: 
  Country: None (occurrence: None)
  Receive Date: 20120210
  Receipt Date: 20120131
  Transmission Date: 20120608
  Serious: Yes (Hospitalization)
  Sender: FDA-Public Use
  Company Number: 1000028054

PATIENT
  Sex: Female

DRUGS (1)
  1. DINOPROSTONE (DINOPROSTONE) (VAGINAL INSERT) [Suspect]
     Indication: LABOUR INDUCTION
     Dosage: (10 MG, ONCE), VAGINAL
     Route: 067
     Dates: start: 20120125, end: 20120125

REACTIONS (4)
  - UTERINE HYPERTONUS [None]
  - FOETAL DEATH [None]
  - MATERNAL EXPOSURE DURING DELIVERY [None]
  - CAESAREAN SECTION [None]
